FAERS Safety Report 15568632 (Version 1)
Quarter: 2018Q4

REPORT INFORMATION
  Report Type: Report from Study
  Country: FR (occurrence: FR)
  Receive Date: 20181031
  Receipt Date: 20181031
  Transmission Date: 20190205
  Serious: Yes (Other)
  Sender: FDA-Public Use
  Company Number: FR-OCTA-GENA03218FR

PATIENT
  Age: 16 Year
  Sex: Male

DRUGS (1)
  1. NUWIQ [Suspect]
     Active Substance: ANTIHEMOPHILIC FACTOR, HUMAN RECOMBINANT
     Indication: PROPHYLAXIS
     Dosage: 3 TIMES A WEEK
     Route: 042
     Dates: start: 20180915, end: 20180923

REACTIONS (3)
  - Haematoma [Not Recovered/Not Resolved]
  - Arthralgia [Unknown]
  - Limb discomfort [Unknown]

NARRATIVE: CASE EVENT DATE: 20180921
